FAERS Safety Report 7827614-0 (Version None)
Quarter: 2011Q4

REPORT INFORMATION
  Report Type: 
  Country: None (occurrence: None)
  Receive Date: 20111020
  Receipt Date: 20111013
  Transmission Date: 20120403
  Serious: Yes (Other)
  Sender: FDA-Public Use
  Company Number: FR-KINGPHARMUSA00001-K201101222

PATIENT
  Age: 61 Year
  Sex: Female

DRUGS (14)
  1. DILTIAZEM HCL [Suspect]
     Dosage: 200 MG, QD
     Route: 048
     Dates: start: 20101006, end: 20101104
  2. INDAPAMIDE [Concomitant]
     Dosage: UNK
     Dates: start: 20101001
  3. ALL OTHER THERAPEUTIC PRODUCTS [Concomitant]
  4. ALTACE [Suspect]
     Indication: HYPERTENSION
     Dosage: 0.75 MG, QD
     Route: 048
     Dates: start: 20101118
  5. MEBEVERINE [Concomitant]
     Dosage: UNK
  6. ASPIRIN [Concomitant]
     Dosage: UNK
     Dates: start: 20101202
  7. ALTACE [Suspect]
     Dosage: 2.5 MG, QD
     Dates: start: 20101206, end: 20101216
  8. LOSARTAN POTASSIUM [Concomitant]
     Dosage: UNK
  9. BETA BLOCKING AGENTS [Concomitant]
     Dosage: UNK
  10. BISOPROLOL FUMARATE [Suspect]
     Dosage: UNK
     Route: 065
     Dates: start: 20101001, end: 20101006
  11. SOTALOL HCL [Concomitant]
     Dosage: UNK
  12. SIMVASTATIN [Concomitant]
     Dosage: UNK
     Dates: start: 20100913
  13. CHAPARRAL DANDELION BLEND [Concomitant]
     Dosage: UNK
  14. BENDROFLUMETHIAZIDE [Concomitant]
     Dosage: UNK
     Dates: start: 20110113

REACTIONS (4)
  - VISUAL IMPAIRMENT [None]
  - DRUG HYPERSENSITIVITY [None]
  - BLOOD PRESSURE INCREASED [None]
  - VISION BLURRED [None]
